FAERS Safety Report 14202361 (Version 1)
Quarter: 2017Q4

REPORT INFORMATION
  Report Type: Spontaneous
  Country: US (occurrence: US)
  Receive Date: 20171117
  Receipt Date: 20171117
  Transmission Date: 20180321
  Serious: Yes (Other)
  Sender: FDA-Public Use
  Company Number: US-NOVOPROD-572408

PATIENT
  Age: 74 Year
  Sex: Male

DRUGS (1)
  1. LEVEMIR [Suspect]
     Active Substance: INSULIN DETEMIR
     Indication: DIABETES MELLITUS INADEQUATE CONTROL
     Dosage: UNK
     Route: 058
     Dates: start: 2012

REACTIONS (6)
  - Lower limb fracture [Unknown]
  - Neck injury [Unknown]
  - Hypoglycaemic unconsciousness [Recovered/Resolved]
  - Rib fracture [Unknown]
  - Shock hypoglycaemic [Recovered/Resolved]
  - Clavicle fracture [Unknown]

NARRATIVE: CASE EVENT DATE: 2015
